FAERS Safety Report 19583298 (Version 2)
Quarter: 2022Q3

REPORT INFORMATION
  Report Type: Spontaneous
  Country: BE (occurrence: BE)
  Receive Date: 20210720
  Receipt Date: 20220801
  Transmission Date: 20221027
  Serious: Yes (Other)
  Sender: FDA-Public Use
  Company Number: None

PATIENT
  Sex: Female

DRUGS (6)
  1. CETIRIZINE [Suspect]
     Active Substance: CETIRIZINE HYDROCHLORIDE
     Indication: Seasonal allergy
     Dosage: 1 DOSAGE FORM, QD, ABOUT 5 YEAR
     Route: 048
  2. ZOCOR [Suspect]
     Active Substance: SIMVASTATIN
     Indication: Product used for unknown indication
     Dosage: 1 DOSAGE FORM, QD (1 DOSAGE FORM, QD, ABOUT 5 YEAR)
     Route: 048
  3. OXYCONTIN [Suspect]
     Active Substance: OXYCODONE HYDROCHLORIDE
     Indication: Pain
     Dosage: UNK (ABOUT 5 YEARS AGO)
     Route: 065
  4. PULMICORT TURBUHALER [Suspect]
     Active Substance: BUDESONIDE
     Indication: Bronchitis
     Dosage: 2 DOSAGE FORM, QD (ABOUT 3 YEARS AGO)
     Route: 048
  5. BILASTINE [Suspect]
     Active Substance: BILASTINE
     Indication: Product used for unknown indication
     Dosage: UNK (ABOUT 5 - 7 YEARS AGO)
     Route: 048
  6. Mobiflex [Concomitant]
     Indication: Joint dislocation
     Dosage: UNK
     Route: 065

REACTIONS (12)
  - Blood pressure increased [Recovered/Resolved]
  - Swelling [Recovered/Resolved]
  - Vomiting [Recovered/Resolved]
  - Arthralgia [Recovered/Resolved]
  - Myalgia [Recovered/Resolved]
  - Blood pressure decreased [Recovered/Resolved]
  - Arrhythmia [Recovered/Resolved]
  - Loss of consciousness [Recovered/Resolved]
  - Dyspnoea [Recovered/Resolved]
  - Rash erythematous [Recovered/Resolved]
  - Nausea [Recovered/Resolved]
  - Headache [Recovered/Resolved]
